FAERS Safety Report 8350945-5 (Version None)
Quarter: 2012Q2

REPORT INFORMATION
  Report Type: 
  Country: None (occurrence: None)
  Receive Date: 20120510
  Receipt Date: 20120430
  Transmission Date: 20120825
  Serious: Yes (Hospitalization)
  Sender: FDA-Public Use
  Company Number: FR-BRISTOL-MYERS SQUIBB COMPANY-16580524

PATIENT
  Age: 91 Year
  Sex: Male

DRUGS (8)
  1. ADANCOR [Suspect]
     Route: 048
     Dates: start: 20100101
  2. ACETAMINOPHEN [Suspect]
     Route: 048
  3. BISOPROLOL FUMARATE [Suspect]
     Dosage: FORM: 2.5MG FILM COATED TABLETS
     Route: 048
     Dates: start: 20100101
  4. NEXIUM [Suspect]
     Dosage: 20MG GASTRO RESISTANT TABLET
     Route: 048
  5. ACETAMINOPHEN AND TRAMADOL HCL [Suspect]
     Route: 048
  6. ASPIRIN [Suspect]
     Dosage: 75MG POWDER FOR ORAL
     Route: 048
     Dates: start: 20100101
  7. METFORMIN HCL [Suspect]
     Route: 048
  8. POTASSIUM CHLORIDE [Suspect]
     Dosage: CAPSULE
     Route: 048
     Dates: start: 20100101

REACTIONS (1)
  - APHTHOUS STOMATITIS [None]
